FAERS Safety Report 6264658-7 (Version None)
Quarter: 2009Q3

REPORT INFORMATION
  Report Type: 
  Country: None (occurrence: None)
  Receive Date: 20090710
  Receipt Date: 20090702
  Transmission Date: 20100115
  Serious: Yes (Hospitalization)
  Sender: FDA-Public Use
  Company Number: US-AVENTIS-200915888US

PATIENT
  Age: 89 Year
  Sex: Female

DRUGS (3)
  1. LANTUS [Suspect]
     Indication: TYPE 1 DIABETES MELLITUS
     Dosage: DOSE: 14-18
     Route: 058
     Dates: start: 20010101
  2. LANTUS [Suspect]
     Dosage: DOSE: UNK
     Route: 058
     Dates: start: 20070101
  3. HUMALOG [Concomitant]
     Dosage: DOSE: UNK

REACTIONS (1)
  - CARDIAC DISORDER [None]
